FAERS Safety Report 8972307 (Version 2)
Quarter: 2013Q4

REPORT INFORMATION
  Report Type: Spontaneous
  Country: US (occurrence: US)
  Receive Date: 20121218
  Receipt Date: 20131106
  Transmission Date: 20140711
  Serious: Yes (Hospitalization)
  Sender: FDA-Public Use
  Company Number: PHHY2012US115197

PATIENT
  Age: 73 Year
  Sex: Female

DRUGS (7)
  1. HEPARIN [Suspect]
  2. ACETYLSALICYLIC ACID [Suspect]
     Indication: ATRIAL FIBRILLATION
     Dosage: 81 MG, DAILY
  3. ACETYLSALICYLIC ACID [Suspect]
     Indication: ACUTE MYOCARDIAL INFARCTION
  4. ACETYLSALICYLIC ACID [Suspect]
     Indication: ANTIPHOSPHOLIPID SYNDROME
  5. DABIGATRAN [Suspect]
     Indication: ATRIAL FIBRILLATION
     Dosage: 150 MG
  6. DABIGATRAN [Suspect]
     Indication: ANTIPHOSPHOLIPID SYNDROME
  7. VASOPRESSORS [Concomitant]

REACTIONS (5)
  - Pericardial haemorrhage [Unknown]
  - Pericardial effusion [Unknown]
  - Hypotension [Unknown]
  - Asthenia [Unknown]
  - Hyperhidrosis [Unknown]
